FAERS Safety Report 5823915-6 (Version None)
Quarter: 2008Q3

REPORT INFORMATION
  Report Type: 
  Country: None (occurrence: None)
  Receive Date: 20080724
  Receipt Date: 20080715
  Transmission Date: 20090109
  Serious: Yes (Hospitalization)
  Sender: FDA-Public Use
  Company Number: JPI-P-004166

PATIENT
  Age: 38 Year
  Sex: Female

DRUGS (18)
  1. XYREM [Suspect]
     Indication: NARCOLEPSY
     Dosage: SEE IMAGE
     Route: 048
     Dates: start: 20080401, end: 20080501
  2. XYREM [Suspect]
     Indication: SLEEP DISORDER
     Dosage: SEE IMAGE
     Route: 048
     Dates: start: 20080401, end: 20080501
  3. XYREM [Suspect]
     Indication: NARCOLEPSY
     Dosage: SEE IMAGE
     Route: 048
     Dates: start: 20080501, end: 20080712
  4. XYREM [Suspect]
     Indication: SLEEP DISORDER
     Dosage: SEE IMAGE
     Route: 048
     Dates: start: 20080501, end: 20080712
  5. XYREM [Suspect]
     Indication: NARCOLEPSY
     Dosage: SEE IMAGE
     Route: 048
     Dates: start: 20080713, end: 20080713
  6. XYREM [Suspect]
     Indication: SLEEP DISORDER
     Dosage: SEE IMAGE
     Route: 048
     Dates: start: 20080713, end: 20080713
  7. XYREM [Suspect]
     Indication: NARCOLEPSY
     Dosage: SEE IMAGE
     Route: 048
     Dates: start: 20080714, end: 20080716
  8. XYREM [Suspect]
     Indication: SLEEP DISORDER
     Dosage: SEE IMAGE
     Route: 048
     Dates: start: 20080714, end: 20080716
  9. XYREM [Suspect]
     Indication: NARCOLEPSY
     Dosage: SEE IMAGE
     Route: 048
     Dates: start: 20080717
  10. XYREM [Suspect]
     Indication: SLEEP DISORDER
     Dosage: SEE IMAGE
     Route: 048
     Dates: start: 20080717
  11. TIZANIDINE HCL [Suspect]
     Indication: MUSCLE RELAXANT THERAPY
     Dosage: 2 IN 1 D,
  12. METHYLPHENIDATE HCL [Concomitant]
  13. MONTELUKAST SODIUM [Concomitant]
  14. RANITIDINE HCL (RANITIDINE HYDROCHLORIDE) [Concomitant]
  15. TRAZODONE HCL [Concomitant]
  16. PREGABALIN (PREGABALIN) [Concomitant]
  17. HYDROCODONE BITARTRATE AND ACETAMINOPHEN (VICODIN) [Concomitant]
  18. ZOLPIDEM TARTRATE [Concomitant]

REACTIONS (12)
  - DIZZINESS [None]
  - DRUG DOSE OMISSION [None]
  - ENURESIS [None]
  - FACIAL BONES FRACTURE [None]
  - FALL [None]
  - HEAD INJURY [None]
  - HYPOTENSION [None]
  - INCORRECT DOSE ADMINISTERED [None]
  - LOSS OF CONSCIOUSNESS [None]
  - MUSCULAR WEAKNESS [None]
  - SOMNOLENCE [None]
  - TREMOR [None]
